FAERS Safety Report 6738949-7 (Version None)
Quarter: 2010Q2

REPORT INFORMATION
  Report Type: 
  Country: None (occurrence: None)
  Receive Date: 20100521
  Receipt Date: 20100512
  Transmission Date: 20101027
  Serious: Yes (Other)
  Sender: FDA-Public Use
  Company Number: AVE_01815_2010

PATIENT
  Sex: Male
  Weight: 46.2669 kg

DRUGS (10)
  1. CLONIDINE [Suspect]
     Indication: HYPERTENSION
     Dosage: (0.2 MG QD, VIA 1/WEEKLY PATCH TRANSDERMAL)
     Route: 062
     Dates: start: 20100506, end: 20100507
  2. LEVOTHYROXINE SODIUM [Concomitant]
  3. COZAAR [Concomitant]
  4. DEPAKOTE [Concomitant]
  5. TEMAZEPAM [Concomitant]
  6. LITHIUM [Concomitant]
  7. MELATONIN [Concomitant]
  8. CETIRIZINE HCL [Concomitant]
  9. CLONIDINE [Concomitant]
  10. VITAMIN D [Concomitant]

REACTIONS (3)
  - BLOOD PRESSURE DECREASED [None]
  - LETHARGY [None]
  - PALLOR [None]
